FAERS Safety Report 6170532-7 (Version None)
Quarter: 2009Q2

REPORT INFORMATION
  Report Type: 
  Country: None (occurrence: None)
  Receive Date: 20090428
  Receipt Date: 20090417
  Transmission Date: 20091009
  Serious: No
  Sender: FDA-Public Use
  Company Number: US-EISAI INC.-E3810-02774-SPO-US

PATIENT
  Sex: Female

DRUGS (3)
  1. ACIPHEX [Suspect]
     Dosage: UNKNOWN
     Route: 048
  2. ARICEPT [Concomitant]
     Route: 048
     Dates: start: 20090301
  3. ARICEPT [Concomitant]
     Route: 048
     Dates: start: 20090215, end: 20090301

REACTIONS (5)
  - DEPRESSION [None]
  - DIARRHOEA [None]
  - HALLUCINATION [None]
  - NAUSEA [None]
  - SCHIZOPHRENIA [None]
